FAERS Safety Report 9967599 (Version 1)
Quarter: 2014Q1

REPORT INFORMATION
  Report Type: Report from Study
  Country: US (occurrence: US)
  Receive Date: 20140305
  Receipt Date: 20140305
  Transmission Date: 20141002
  Serious: No
  Sender: FDA-Public Use
  Company Number: US-ABBVIE-13P-163-1139316-00

PATIENT
  Age: 71 Year
  Sex: Female
  Weight: 82.63 kg

DRUGS (15)
  1. HUMIRA [Suspect]
     Indication: RHEUMATOID ARTHRITIS
     Route: 058
     Dates: start: 201306
  2. PLAQUENIL [Concomitant]
     Indication: PRODUCT USED FOR UNKNOWN INDICATION
  3. SIMVASTATIN [Concomitant]
     Indication: PRODUCT USED FOR UNKNOWN INDICATION
  4. ASPIRIN [Concomitant]
     Indication: PRODUCT USED FOR UNKNOWN INDICATION
     Dosage: CHW
  5. FLONASE [Concomitant]
     Indication: PRODUCT USED FOR UNKNOWN INDICATION
     Dosage: SPRAY
  6. EPIPEN [Concomitant]
     Indication: PRODUCT USED FOR UNKNOWN INDICATION
  7. METROLOTION [Concomitant]
     Indication: PRODUCT USED FOR UNKNOWN INDICATION
     Dosage: LOTION
  8. CALCIUM GLUCONATE [Concomitant]
     Indication: PRODUCT USED FOR UNKNOWN INDICATION
  9. LOSARTAN [Concomitant]
     Indication: PRODUCT USED FOR UNKNOWN INDICATION
  10. VITAMIN D [Concomitant]
     Indication: PRODUCT USED FOR UNKNOWN INDICATION
  11. MULTIVITAL [Concomitant]
     Indication: PRODUCT USED FOR UNKNOWN INDICATION
  12. FOLIC ACID [Concomitant]
     Indication: PRODUCT USED FOR UNKNOWN INDICATION
  13. OMEGA 3 [Concomitant]
     Indication: PRODUCT USED FOR UNKNOWN INDICATION
  14. METHOTREXATE [Concomitant]
     Indication: PRODUCT USED FOR UNKNOWN INDICATION
  15. HYDROCHLOROTHIAZIDE W/TRIAMTERENE [Concomitant]
     Indication: PRODUCT USED FOR UNKNOWN INDICATION
     Dosage: 25-37.5

REACTIONS (5)
  - Hypotension [Recovered/Resolved]
  - Weight decreased [Recovered/Resolved]
  - Dyspnoea [Recovered/Resolved]
  - Gastroenteritis [Recovered/Resolved]
  - Colitis [Recovered/Resolved]
